FAERS Safety Report 13350307 (Version 2)
Quarter: 2017Q2

REPORT INFORMATION
  Report Type: Spontaneous
  Country: US (occurrence: US)
  Receive Date: 20170320
  Receipt Date: 20170515
  Transmission Date: 20170830
  Serious: Yes (Hospitalization, Other)
  Sender: FDA-Public Use
  Company Number: US-GLAXOSMITHKLINE-US2017038010

PATIENT
  Age: 47 Year
  Sex: Female

DRUGS (2)
  1. SUMATRIPTAN SUCCINATE. [Suspect]
     Active Substance: SUMATRIPTAN SUCCINATE
     Indication: MIGRAINE
     Dosage: 100 MG, UNK
     Dates: start: 2003
  2. IMITREX [Suspect]
     Active Substance: SUMATRIPTAN SUCCINATE
     Indication: MIGRAINE
     Dosage: UNK UNK, PRN

REACTIONS (4)
  - Neck surgery [Unknown]
  - Medical device implantation [Unknown]
  - Drug ineffective [Unknown]
  - Spinal fusion surgery [Unknown]

NARRATIVE: CASE EVENT DATE: 200311
